FAERS Safety Report 9200160 (Version 1)
Quarter: 2013Q1

REPORT INFORMATION
  Report Type: Spontaneous
  Country: CA (occurrence: CA)
  Receive Date: 20130329
  Receipt Date: 20130329
  Transmission Date: 20140127
  Serious: Yes (Other)
  Sender: FDA-Public Use
  Company Number: CA-AMGEN-CANSP2013020810

PATIENT
  Age: 52 Year
  Sex: Female

DRUGS (2)
  1. NEUPOGEN [Suspect]
     Indication: PRODUCT USED FOR UNKNOWN INDICATION
     Dosage: UNK
     Dates: start: 20130117, end: 20130315
  2. DEXAMETHASONE [Concomitant]
     Dosage: UNK

REACTIONS (3)
  - Urticaria [Recovering/Resolving]
  - Rash [Recovered/Resolved]
  - White blood cell count increased [Unknown]
